FAERS Safety Report 21758581 (Version 1)
Quarter: 2022Q4

REPORT INFORMATION
  Report Type: Spontaneous
  Country: US (occurrence: US)
  Receive Date: 20221221
  Receipt Date: 20221221
  Transmission Date: 20230113
  Serious: No
  Sender: FDA-Public Use
  Company Number: US-SA-SAC20221220000236

PATIENT
  Sex: Female

DRUGS (3)
  1. DUPIXENT [Suspect]
     Active Substance: DUPILUMAB
     Indication: Asthma
     Dosage: UNK
     Route: 058
  2. ELIQUIS [Concomitant]
     Active Substance: APIXABAN
  3. CODEINE [Concomitant]
     Active Substance: CODEINE

REACTIONS (1)
  - COVID-19 [Not Recovered/Not Resolved]
